FAERS Safety Report 7549524-9 (Version None)
Quarter: 2011Q2

REPORT INFORMATION
  Report Type: 
  Country: None (occurrence: None)
  Receive Date: 20110615
  Receipt Date: 20110610
  Transmission Date: 20111010
  Serious: Yes (Hospitalization)
  Sender: FDA-Public Use
  Company Number: A0731272A

PATIENT
  Age: 55 Year
  Sex: Male

DRUGS (1)
  1. AVANDIA [Suspect]
     Dosage: 2MG PER DAY
     Route: 048
     Dates: start: 20040101, end: 20070601

REACTIONS (9)
  - ANXIETY [None]
  - ERECTILE DYSFUNCTION [None]
  - DISCOMFORT [None]
  - DEPRESSION [None]
  - PAIN [None]
  - DIABETIC COMPLICATION [None]
  - SWELLING [None]
  - MYOCARDIAL INFARCTION [None]
  - BLOOD PRESSURE FLUCTUATION [None]
